FAERS Safety Report 4322510-8 (Version None)
Quarter: 2004Q1

REPORT INFORMATION
  Report Type: 
  Country: None (occurrence: None)
  Receive Date: 20040319
  Receipt Date: 20040304
  Transmission Date: 20041129
  Serious: Yes (Hospitalization)
  Sender: FDA-Public Use
  Company Number: 02100-JPN-03-0249

PATIENT
  Age: 63 Year
  Sex: Male

DRUGS (7)
  1. CILOSTAZOL [Suspect]
     Indication: BRADYCARDIA
     Dosage: 200 MG ORAL
     Route: 048
     Dates: start: 20030710, end: 20031020
  2. CANDESARTAN CILEXETIL [Concomitant]
  3. ASPIRIN [Concomitant]
  4. FUROSEMIDE [Concomitant]
  5. PIMOBENDAN [Concomitant]
  6. GLYCERYL TRINITRATE [Concomitant]
  7. INSULIN [Concomitant]

REACTIONS (9)
  - ANGIOPATHY [None]
  - CARDIAC FAILURE [None]
  - CHOLELITHIASIS [None]
  - HEART RATE IRREGULAR [None]
  - HEPATIC CONGESTION [None]
  - PLEURAL EFFUSION [None]
  - REFUSAL OF TREATMENT BY PATIENT [None]
  - SINUS BRADYCARDIA [None]
  - WEIGHT INCREASED [None]
